FAERS Safety Report 20692018 (Version 2)
Quarter: 2023Q2

REPORT INFORMATION
  Report Type: Spontaneous
  Country: CA (occurrence: None)
  Receive Date: 20220408
  Receipt Date: 20230425
  Transmission Date: 20230722
  Serious: Yes (Hospitalization, Disabling)
  Sender: FDA-Public Use
  Company Number: CA-ROCHE-3063932

PATIENT
  Age: 63 Year
  Sex: Female

DRUGS (22)
  1. ACTEMRA [Suspect]
     Active Substance: TOCILIZUMAB
     Indication: Rheumatoid arthritis
     Route: 042
  2. ACTEMRA [Suspect]
     Active Substance: TOCILIZUMAB
     Indication: Rheumatoid arthritis
     Route: 065
  3. NAPROXEN [Suspect]
     Active Substance: NAPROXEN
     Indication: Uveitis
     Route: 048
  4. NAPROXEN [Suspect]
     Active Substance: NAPROXEN
     Indication: Rheumatoid arthritis
     Route: 048
  5. NAPROXEN [Suspect]
     Active Substance: NAPROXEN
     Indication: Juvenile idiopathic arthritis
     Route: 065
  6. NAPROXEN [Suspect]
     Active Substance: NAPROXEN
     Route: 048
  7. NAPROXEN [Suspect]
     Active Substance: NAPROXEN
     Route: 065
  8. NAPROXEN [Suspect]
     Active Substance: NAPROXEN
     Route: 065
  9. NAPROXEN [Suspect]
     Active Substance: NAPROXEN
     Route: 048
  10. NAPROXEN [Suspect]
     Active Substance: NAPROXEN
     Indication: Uveitis
     Route: 065
  11. NAPROXEN [Suspect]
     Active Substance: NAPROXEN
     Indication: Juvenile idiopathic arthritis
     Route: 048
  12. NAPROXEN [Suspect]
     Active Substance: NAPROXEN
     Route: 065
  13. NAPROXEN [Suspect]
     Active Substance: NAPROXEN
     Route: 048
  14. NAPROXEN [Suspect]
     Active Substance: NAPROXEN
     Route: 048
  15. NAPROXEN [Suspect]
     Active Substance: NAPROXEN
     Route: 065
  16. NAPROXEN [Suspect]
     Active Substance: NAPROXEN
     Route: 065
  17. NAPROXEN SODIUM [Suspect]
     Active Substance: NAPROXEN SODIUM
     Indication: Rheumatoid arthritis
     Route: 065
  18. NAPROXEN SODIUM [Suspect]
     Active Substance: NAPROXEN SODIUM
     Route: 065
  19. NAPROXEN SODIUM [Suspect]
     Active Substance: NAPROXEN SODIUM
     Route: 065
  20. NAPROXEN SODIUM [Suspect]
     Active Substance: NAPROXEN SODIUM
     Route: 048
  21. NAPROXEN SODIUM [Suspect]
     Active Substance: NAPROXEN SODIUM
     Route: 048
  22. NAPROXEN SODIUM [Suspect]
     Active Substance: NAPROXEN SODIUM
     Route: 065

REACTIONS (36)
  - Arthralgia [Not Recovered/Not Resolved]
  - Arthropathy [Not Recovered/Not Resolved]
  - C-reactive protein abnormal [Not Recovered/Not Resolved]
  - C-reactive protein increased [Not Recovered/Not Resolved]
  - Condition aggravated [Not Recovered/Not Resolved]
  - Contraindicated product administered [Unknown]
  - Off label use [Unknown]
  - Drug ineffective [Unknown]
  - Treatment failure [Unknown]
  - Fall [Unknown]
  - Drug hypersensitivity [Not Recovered/Not Resolved]
  - Drug-induced liver injury [Not Recovered/Not Resolved]
  - Fatigue [Not Recovered/Not Resolved]
  - Femur fracture [Not Recovered/Not Resolved]
  - Haematocrit decreased [Not Recovered/Not Resolved]
  - Haemoglobin decreased [Not Recovered/Not Resolved]
  - Impaired healing [Not Recovered/Not Resolved]
  - Joint swelling [Not Recovered/Not Resolved]
  - Multiple fractures [Not Recovered/Not Resolved]
  - Musculoskeletal pain [Not Recovered/Not Resolved]
  - Osteoporosis [Not Recovered/Not Resolved]
  - Pain [Not Recovered/Not Resolved]
  - Pain in extremity [Not Recovered/Not Resolved]
  - Peripheral swelling [Not Recovered/Not Resolved]
  - Rash [Not Recovered/Not Resolved]
  - Red blood cell count decreased [Not Recovered/Not Resolved]
  - Red blood cell sedimentation rate abnormal [Not Recovered/Not Resolved]
  - Rheumatoid arthritis [Not Recovered/Not Resolved]
  - Synovitis [Not Recovered/Not Resolved]
  - Drug intolerance [Not Recovered/Not Resolved]
  - Inflammatory marker increased [Not Recovered/Not Resolved]
  - Liver disorder [Not Recovered/Not Resolved]
  - Keratitis [Not Recovered/Not Resolved]
  - Musculoskeletal stiffness [Not Recovered/Not Resolved]
  - Myalgia [Not Recovered/Not Resolved]
  - Rheumatoid lung [Not Recovered/Not Resolved]
